FAERS Safety Report 8466206-X (Version None)
Quarter: 2012Q2

REPORT INFORMATION
  Report Type: 
  Country: None (occurrence: None)
  Receive Date: 20120620
  Receipt Date: 20120620
  Transmission Date: 20120825
  Serious: No
  Sender: FDA-Public Use
  Company Number: None

PATIENT
  Age: 55 Year
  Sex: Female
  Weight: 58.9676 kg

DRUGS (2)
  1. TRANSDERM SCOP [Suspect]
     Indication: MOTION SICKNESS
     Dosage: 1 PATCH BEHIND EAR FOR 6 DAYS
     Dates: start: 20080121, end: 20080127
  2. TRANSDERM SCOP [Suspect]
     Indication: PROPHYLAXIS
     Dosage: 1 PATCH BEHIND EAR FOR 6 DAYS
     Dates: start: 20080121, end: 20080127

REACTIONS (2)
  - IMPULSIVE BEHAVIOUR [None]
  - FEAR [None]
